FAERS Safety Report 15369574 (Version 1)
Quarter: 2018Q3

REPORT INFORMATION
  Report Type: Spontaneous
  Country: FR (occurrence: FR)
  Receive Date: 20180911
  Receipt Date: 20180911
  Transmission Date: 20181010
  Serious: Yes (Life-Threatening, Hospitalization)
  Sender: FDA-Public Use
  Company Number: FR-AMGEN-FRASP2018124364

PATIENT
  Age: 25 Year
  Sex: Female
  Weight: 52 kg

DRUGS (10)
  1. CICLOSPORINE [Suspect]
     Active Substance: CYCLOSPORINE
     Indication: ACUTE LYMPHOCYTIC LEUKAEMIA
     Dosage: 1 DF, UNK
     Route: 048
     Dates: start: 20180731
  2. BACTRIM [Concomitant]
     Active Substance: SULFAMETHOXAZOLE\TRIMETHOPRIM
  3. ZOVIRAX [Concomitant]
     Active Substance: ACYCLOVIR
  4. AMIKACINE [Concomitant]
     Active Substance: AMIKACIN
  5. LUTENYL [Concomitant]
     Active Substance: NOMEGESTROL ACETATE
  6. BLINCYTO [Suspect]
     Active Substance: BLINATUMOMAB
     Indication: ACUTE LYMPHOCYTIC LEUKAEMIA
     Dosage: 1 DF, CYCLICAL
     Route: 042
     Dates: start: 20180416, end: 20180604
  7. MEROPENEM ANHYDROUS [Concomitant]
     Active Substance: MEROPENEM ANHYDROUS
  8. ENDOXAN [Suspect]
     Active Substance: CYCLOPHOSPHAMIDE
     Indication: ACUTE LYMPHOCYTIC LEUKAEMIA
     Dosage: 60 MG/KG, UNK
     Route: 042
     Dates: start: 20180728, end: 20180729
  9. METHOTREXATE. [Suspect]
     Active Substance: METHOTREXATE
     Indication: ACUTE LYMPHOCYTIC LEUKAEMIA
     Dosage: 1 DF, CYCLICAL
     Route: 042
     Dates: start: 20180731
  10. TRIFLUCAN [Concomitant]
     Active Substance: FLUCONAZOLE

REACTIONS (1)
  - Cardiogenic shock [Not Recovered/Not Resolved]

NARRATIVE: CASE EVENT DATE: 20180813
